FAERS Safety Report 4376868-4 (Version None)
Quarter: 2004Q2

REPORT INFORMATION
  Report Type: 
  Country: None (occurrence: None)
  Receive Date: 20040608
  Receipt Date: 20030609
  Transmission Date: 20050107
  Serious: Yes (Other)
  Sender: FDA-Public Use
  Company Number: 200311965BCC

PATIENT
  Age: 66 Year
  Sex: Female
  Weight: 68.0396 kg

DRUGS (5)
  1. ALEVE [Suspect]
     Indication: SLEEP DISORDER THERAPY
     Dosage: 440 MG, BID, ORAL
     Route: 048
     Dates: start: 20030101, end: 20030606
  2. CELEXA [Concomitant]
  3. TRIAMTERENE AND HYDROCHLOROTHIAZIDE [Concomitant]
  4. ASPIRIN [Concomitant]
  5. THYROID TAB [Concomitant]

REACTIONS (1)
  - HAEMOGLOBIN DECREASED [None]
